FAERS Safety Report 19772812 (Version 2)
Quarter: 2024Q3

REPORT INFORMATION
  Report Type: Spontaneous
  Country: CN (occurrence: CN)
  Receive Date: 20210831
  Receipt Date: 20240906
  Transmission Date: 20241017
  Serious: Yes (Other)
  Sender: PFIZER
  Company Number: CN-PFIZER INC-202101098623

PATIENT
  Age: 17 Year
  Sex: Male
  Weight: 44 kg

DRUGS (4)
  1. METHYLPREDNISOLONE [Suspect]
     Active Substance: METHYLPREDNISOLONE
     Indication: Therapeutic procedure
     Dosage: 6 MG, 1X/DAY
     Route: 048
     Dates: start: 20210722, end: 20210807
  2. ATORVASTATIN CALCIUM [Suspect]
     Active Substance: ATORVASTATIN CALCIUM
     Indication: Nephrotic syndrome
     Dosage: 20 MG, 1X/DAY
     Route: 048
     Dates: start: 20210722, end: 20210807
  3. PANTOPRAZOLE SODIUM [Suspect]
     Active Substance: PANTOPRAZOLE SODIUM
     Indication: Therapeutic procedure
     Dosage: 40 MG, 1X/DAY
     Route: 048
     Dates: start: 20210722, end: 20210807
  4. CALCIUM CARBONATE\CHOLECALCIFEROL [Concomitant]
     Active Substance: CALCIUM CARBONATE\CHOLECALCIFEROL
     Indication: Nephrotic syndrome
     Dosage: 2 DF, 1X/DAY
     Route: 048
     Dates: start: 20210722, end: 20210807

REACTIONS (3)
  - Rash [Recovering/Resolving]
  - Pruritus [Recovering/Resolving]
  - Dermatitis allergic [Recovering/Resolving]

NARRATIVE: CASE EVENT DATE: 20210808
